FAERS Safety Report 8315453 (Version 2)
Quarter: 2013Q1

REPORT INFORMATION
  Report Type: Spontaneous
  Country: US (occurrence: US)
  Receive Date: 20111229
  Receipt Date: 20130222
  Transmission Date: 20140127
  Serious: Yes (Life-Threatening, Congenital Anomaly, Other)
  Sender: FDA-Public Use
  Company Number: US-PFIZER INC-2011288483

PATIENT
  Sex: Male

DRUGS (12)
  1. ZOLOFT [Suspect]
     Dosage: UNK
     Route: 064
     Dates: start: 20070827, end: 20100208
  2. SERTRALINE HCL [Suspect]
     Dosage: UNK
     Route: 064
     Dates: start: 20070827, end: 20100208
  3. SYNTHROID [Concomitant]
     Dosage: UNK
     Route: 064
  4. ALDOMET [Concomitant]
     Dosage: UNK
     Route: 064
  5. METHYLDOPA [Concomitant]
     Dosage: UNK
     Route: 064
  6. SLOW-FE [Concomitant]
     Dosage: UNK
     Route: 064
  7. DIOVAN [Concomitant]
     Dosage: UNK
     Route: 064
  8. TYLENOL [Concomitant]
     Dosage: UNK
     Route: 064
  9. PRENATAL VITAMINS [Concomitant]
     Dosage: UNK
     Route: 064
  10. AMOXICILLIN [Concomitant]
     Dosage: UNK
     Route: 064
  11. METOPROLOL [Concomitant]
     Dosage: UNK
     Route: 064
  12. FIORICET [Concomitant]
     Dosage: UNK
     Route: 064

REACTIONS (6)
  - Maternal exposure timing unspecified [Unknown]
  - Congenital anomaly [Unknown]
  - Cardiac murmur [Unknown]
  - Pulmonary artery stenosis congenital [Unknown]
  - Atrial septal defect [Unknown]
  - Premature baby [Unknown]
